FAERS Safety Report 9571448 (Version 1)
Quarter: 2013Q3

REPORT INFORMATION
  Report Type: Spontaneous
  Country: AR (occurrence: None)
  Receive Date: 20130927
  Receipt Date: 20130927
  Transmission Date: 20140515
  Serious: Yes (Death, Disabling, Other)
  Sender: FDA-Public Use
  Company Number: ENTC2013-0343

PATIENT
  Sex: Male

DRUGS (1)
  1. STALEVO [Suspect]
     Indication: BALANCE DISORDER
     Dosage: 2 DF (50 MG) DAILY, ORAL
     Route: 048

REACTIONS (3)
  - Psychomotor skills impaired [None]
  - Parkinson^s disease [None]
  - Fall [None]
